FAERS Safety Report 13376606 (Version 1)
Quarter: 2017Q1

REPORT INFORMATION
  Report Type: Spontaneous
  Country: US (occurrence: US)
  Receive Date: 20170327
  Receipt Date: 20170327
  Transmission Date: 20170429
  Serious: Yes (Disabling)
  Sender: FDA-Public Use
  Company Number: None

PATIENT
  Age: 55 Year
  Sex: Male
  Weight: 85.5 kg

DRUGS (1)
  1. ROPIVICAINE [Suspect]
     Active Substance: ROPIVACAINE
     Indication: PROCEDURAL PAIN
     Route: 053
     Dates: start: 20160519, end: 20160520

REACTIONS (1)
  - Peripheral nerve lesion [None]

NARRATIVE: CASE EVENT DATE: 20160519
